FAERS Safety Report 6637962-8 (Version None)
Quarter: 2010Q1

REPORT INFORMATION
  Report Type: 
  Country: None (occurrence: None)
  Receive Date: 20100317
  Receipt Date: 20100314
  Transmission Date: 20100710
  Serious: Yes (Death)
  Sender: FDA-Public Use
  Company Number: PHEH2010US03093

PATIENT
  Age: 24 Year
  Sex: Female
  Weight: 58.957 kg

DRUGS (6)
  1. TEKTURNA [Suspect]
     Indication: HYPERTENSION
     Dosage: 150 MG, QD
     Route: 048
     Dates: start: 20081215, end: 20081230
  2. TEKTURNA [Suspect]
     Indication: CARDIAC FAILURE
  3. INSULIN [Concomitant]
     Dosage: UNK, UNK
     Route: 065
  4. CLONIDINE [Concomitant]
     Dosage: UNK, UNK
     Route: 065
  5. HYDRALAZINE HCL [Concomitant]
     Dosage: UNK, UNK
     Route: 065
  6. MINOXIDIL [Concomitant]
     Dosage: UNK, UNK
     Route: 065

REACTIONS (2)
  - ARRHYTHMIA [None]
  - BLOOD CREATININE INCREASED [None]
